FAERS Safety Report 6274985-5 (Version None)
Quarter: 2009Q3

REPORT INFORMATION
  Report Type: 
  Country: None (occurrence: None)
  Receive Date: 20090721
  Receipt Date: 20090716
  Transmission Date: 20100115
  Serious: Yes (Other)
  Sender: FDA-Public Use
  Company Number: US-ASTRAZENECA-2009UW12729

PATIENT
  Age: 56 Year
  Sex: Female
  Weight: 68 kg

DRUGS (5)
  1. SEROQUEL [Suspect]
     Indication: POST-TRAUMATIC STRESS DISORDER
     Dosage: 25 MG TO 200 MG DAILY
     Route: 048
     Dates: start: 19990101, end: 20060701
  2. SEROQUEL [Suspect]
     Indication: PANIC DISORDER
     Dosage: 25 MG TO 200 MG DAILY
     Route: 048
     Dates: start: 19990101, end: 20060701
  3. SEROQUEL [Suspect]
     Indication: DEPRESSION
     Dosage: 25 MG TO 200 MG DAILY
     Route: 048
     Dates: start: 19990101, end: 20060701
  4. RITALIN [Concomitant]
  5. PROZAC [Concomitant]

REACTIONS (5)
  - BLOOD CHOLESTEROL INCREASED [None]
  - HIP FRACTURE [None]
  - HYPERTENSION [None]
  - PANCREATITIS ACUTE [None]
  - TYPE 2 DIABETES MELLITUS [None]
